FAERS Safety Report 20068511 (Version 1)
Quarter: 2021Q4

REPORT INFORMATION
  Report Type: Spontaneous
  Country: US (occurrence: US)
  Receive Date: 20211115
  Receipt Date: 20211115
  Transmission Date: 20220303
  Serious: Yes (Death, Hospitalization, Other)
  Sender: FDA-Public Use
  Company Number: US-AMGEN-USASP2021175375

PATIENT

DRUGS (3)
  1. FILGRASTIM [Suspect]
     Active Substance: FILGRASTIM
     Indication: Haematopoietic stem cell mobilisation
     Dosage: 10 MICROGRAM/KILOGRAM, QD (FOR 5 DAYS)
     Route: 058
  2. CYCLOPHOSPHAMIDE [Concomitant]
     Active Substance: CYCLOPHOSPHAMIDE
     Indication: Haematopoietic stem cell mobilisation
     Dosage: 4 GRAM PER SQUARE METRE, QD (FOR 4 DAYS)
     Route: 042
  3. MELPHALAN [Concomitant]
     Active Substance: MELPHALAN
     Indication: Haematopoietic stem cell mobilisation
     Dosage: 200 MILLIGRAM/SQ. METER

REACTIONS (6)
  - Death [Fatal]
  - Febrile neutropenia [Unknown]
  - Toxicity to various agents [Unknown]
  - Cystitis haemorrhagic [Unknown]
  - Therapy partial responder [Unknown]
  - Myalgia [Unknown]
